FAERS Safety Report 23457162 (Version 1)
Quarter: 2024Q1

REPORT INFORMATION
  Report Type: Spontaneous
  Country: TW (occurrence: TW)
  Receive Date: 20240130
  Receipt Date: 20240130
  Transmission Date: 20240410
  Serious: Yes (Other)
  Sender: FDA-Public Use
  Company Number: TW-002147023-NVSC2024TW011182

PATIENT
  Age: 68 Year
  Sex: Male

DRUGS (5)
  1. MYFORTIC [Suspect]
     Active Substance: MYCOPHENOLATE SODIUM
     Indication: Glomerulonephritis membranoproliferative
     Dosage: 180 MG, BID
     Route: 065
     Dates: start: 20230210, end: 20240115
  2. CYCLOSPORINE [Suspect]
     Active Substance: CYCLOSPORINE
     Indication: Glomerulonephritis membranoproliferative
     Dosage: 100 MG, BID
     Route: 065
     Dates: start: 20221202, end: 20230210
  3. PREDNISOLONE [Suspect]
     Active Substance: PREDNISOLONE
     Indication: Product used for unknown indication
     Dosage: 5 MG, BID
     Route: 065
     Dates: start: 20220901, end: 20240115
  4. CYCLOPHOSPHAMIDE [Suspect]
     Active Substance: CYCLOPHOSPHAMIDE
     Indication: Product used for unknown indication
     Dosage: 50 MG, QD
     Route: 065
     Dates: start: 20230324, end: 20230512
  5. EXFORGE [Concomitant]
     Active Substance: AMLODIPINE BESYLATE\VALSARTAN
     Indication: Product used for unknown indication
     Dosage: UNK, 5/80 MG
     Route: 065
     Dates: start: 20220901

REACTIONS (4)
  - Neutropenia [Not Recovered/Not Resolved]
  - Treatment failure [Not Recovered/Not Resolved]
  - Proteinuria [Not Recovered/Not Resolved]
  - Drug ineffective [Not Recovered/Not Resolved]
